FAERS Safety Report 10305529 (Version 1)
Quarter: 2014Q3

REPORT INFORMATION
  Report Type: Spontaneous
  Country: JP (occurrence: JP)
  Receive Date: 20140715
  Receipt Date: 20140715
  Transmission Date: 20150326
  Serious: Yes (Hospitalization)
  Sender: FDA-Public Use
  Company Number: PHHY2014JP085358

PATIENT
  Age: 51 Year
  Sex: Female

DRUGS (6)
  1. CEFTRIAXONE SODIUM SANDOZ [Suspect]
     Active Substance: CEFTRIAXONE SODIUM
     Indication: URINARY TRACT INFECTION
     Dosage: 1 G, BID
  2. CEFTRIAXONE SODIUM SANDOZ [Suspect]
     Active Substance: CEFTRIAXONE SODIUM
     Indication: ARTHRITIS BACTERIAL
     Dosage: 2 G, BID
     Route: 042
  3. CEPHALEXIN. [Concomitant]
     Active Substance: CEPHALEXIN
     Dosage: 500 MG, TID
     Route: 048
  4. LEVOFLOXACIN [Concomitant]
     Active Substance: LEVOFLOXACIN
     Dosage: 500 MG, DAILY
  5. RIFAMPICIN SANDOZ [Suspect]
     Active Substance: RIFAMPIN
     Dosage: 450 MG, DAILY
     Route: 048
  6. CEPHALEXIN. [Concomitant]
     Active Substance: CEPHALEXIN
     Dosage: 2 G, TID

REACTIONS (3)
  - Liver disorder [Unknown]
  - Diarrhoea [Unknown]
  - Pyrexia [Recovering/Resolving]
